FAERS Safety Report 5524204-X (Version None)
Quarter: 2007Q4

REPORT INFORMATION
  Report Type: 
  Country: None (occurrence: None)
  Receive Date: 20071121
  Receipt Date: 20071110
  Transmission Date: 20080405
  Serious: Yes (Other)
  Sender: FDA-Public Use
  Company Number: US-PFIZER INC-2007077326

PATIENT
  Age: 25 Year
  Sex: Male

DRUGS (2)
  1. GEODON [Suspect]
     Indication: SCHIZOAFFECTIVE DISORDER
     Dosage: DAILY DOSE:160MG
     Dates: start: 20070101, end: 20070501
  2. ZYPREXA [Concomitant]
     Indication: SCHIZOPHRENIA
     Dosage: DAILY DOSE:40MG

REACTIONS (2)
  - DYSKINESIA [None]
  - PARANOIA [None]
